FAERS Safety Report 4717622-0 (Version None)
Quarter: 2005Q3

REPORT INFORMATION
  Report Type: 
  Country: None (occurrence: None)
  Receive Date: 20050712
  Receipt Date: 20050315
  Transmission Date: 20060218
  Serious: No
  Sender: FDA-Public Use
  Company Number: 2005S1000043

PATIENT
  Age: 54 Year
  Sex: Female
  Weight: 81 kg

DRUGS (5)
  1. CUBICIN [Suspect]
     Indication: BREAST ABSCESS
     Dosage: 500 MG; Q24H; IV
     Route: 042
     Dates: start: 20050303, end: 20050314
  2. TRIAMCINOLONE [Concomitant]
  3. ALBUTEROL [Concomitant]
  4. FUROSEMIDE [Concomitant]
  5. METFORMIN [Concomitant]

REACTIONS (2)
  - BLOOD CREATINE PHOSPHOKINASE INCREASED [None]
  - MYALGIA [None]
